FAERS Safety Report 24386256 (Version 3)
Quarter: 2024Q4

REPORT INFORMATION
  Report Type: Spontaneous
  Country: US (occurrence: US)
  Receive Date: 20241001
  Receipt Date: 20241011
  Transmission Date: 20250115
  Serious: Yes (Hospitalization)
  Sender: RIGEL PHARMACEUTICALS
  Company Number: US-RIGEL Pharmaceuticals. INC- 20240900001

PATIENT
  Sex: Male

DRUGS (5)
  1. TAVALISSE [Suspect]
     Active Substance: FOSTAMATINIB
     Indication: Immune thrombocytopenia
     Dosage: 100 MG, BID
     Route: 048
     Dates: start: 20240809
  2. TAVALISSE [Suspect]
     Active Substance: FOSTAMATINIB
     Indication: Acute myeloid leukaemia
     Dosage: 100 MG, BID
     Route: 048
     Dates: start: 2024
  3. DOPTELET [Concomitant]
     Active Substance: AVATROMBOPAG MALEATE
     Indication: Product used for unknown indication
     Dosage: 20 MG, QD
  4. MIDODRINE [Concomitant]
     Active Substance: MIDODRINE
     Indication: Product used for unknown indication
     Dosage: UNK, TID
  5. TYLENOL [Concomitant]
     Active Substance: ACETAMINOPHEN
     Indication: Product used for unknown indication
     Dosage: UNK

REACTIONS (14)
  - Fall [Recovering/Resolving]
  - Head injury [Recovering/Resolving]
  - Rotator cuff syndrome [Unknown]
  - Pneumonia [Not Recovered/Not Resolved]
  - Arteriovenous fistula operation [Unknown]
  - Depression [Unknown]
  - Frustration tolerance decreased [Unknown]
  - Cataract operation [Unknown]
  - Platelet count decreased [Unknown]
  - Product dose omission issue [Unknown]
  - Pruritus [Unknown]
  - Urinary tract infection [Unknown]
  - Chest pain [Unknown]
  - Dyspnoea [Unknown]

NARRATIVE: CASE EVENT DATE: 20240101
